FAERS Safety Report 19734505 (Version 4)
Quarter: 2022Q4

REPORT INFORMATION
  Report Type: Other
  Country: DE (occurrence: None)
  Receive Date: 20210824
  Receipt Date: 20221229
  Transmission Date: 20230113
  Serious: No
  Sender: FDA-Public Use
  Company Number: DE-ROCHE-2615113

PATIENT
  Age: 59 Year
  Sex: Female

DRUGS (7)
  1. OCREVUS [Suspect]
     Active Substance: OCRELIZUMAB
     Indication: Multiple sclerosis
     Dosage: 28/APR/2022, DATE OF THE 7TH MAINTENANCE DOSE
     Route: 042
     Dates: start: 20181017
  2. OCREVUS [Suspect]
     Active Substance: OCRELIZUMAB
     Dosage: SUBSEQUENT DOSE: 02/NOV/2020
     Route: 042
     Dates: start: 20200422
  3. OCREVUS [Suspect]
     Active Substance: OCRELIZUMAB
     Route: 042
     Dates: start: 20210419
  4. OCREVUS [Suspect]
     Active Substance: OCRELIZUMAB
     Route: 042
     Dates: start: 20211025
  5. OCREVUS [Suspect]
     Active Substance: OCRELIZUMAB
     Route: 042
     Dates: start: 20201102
  6. VAXZEVRIA [Suspect]
     Active Substance: AZD-1222
     Indication: COVID-19 immunisation
     Dosage: FIRST VACCINATION; ASTRAZENECA
     Route: 065
     Dates: start: 20210314
  7. CHOLECALCIFEROL [Concomitant]
     Active Substance: CHOLECALCIFEROL

REACTIONS (6)
  - Fatigue [Recovered/Resolved]
  - Pyrexia [Recovered/Resolved]
  - Viral test positive [Recovered/Resolved]
  - Influenza like illness [Recovered/Resolved]
  - Inappropriate schedule of product administration [Unknown]
  - Cognitive disorder [Not Recovered/Not Resolved]

NARRATIVE: CASE EVENT DATE: 20200422
